FAERS Safety Report 8163768-7 (Version None)
Quarter: 2012Q1

REPORT INFORMATION
  Report Type: 
  Country: None (occurrence: None)
  Receive Date: 20120224
  Receipt Date: 20120221
  Transmission Date: 20120608
  Serious: Yes (Death)
  Sender: FDA-Public Use
  Company Number: PHHY2012FR015286

PATIENT
  Sex: Male

DRUGS (1)
  1. OSLIF BREEZHALER [Suspect]

REACTIONS (1)
  - MYOCARDIAL INFARCTION [None]
